FAERS Safety Report 6111101-4 (Version None)
Quarter: 2009Q1

REPORT INFORMATION
  Report Type: 
  Country: None (occurrence: None)
  Receive Date: 20090309
  Receipt Date: 20090226
  Transmission Date: 20090719
  Serious: Yes (Other)
  Sender: FDA-Public Use
  Company Number: GXKR2009BR02481

PATIENT
  Age: 36 Year
  Sex: Male

DRUGS (4)
  1. CYCLOSPORINE [Suspect]
     Indication: IMMUNOSUPPRESSION
  2. BASILIXIMAB (BASILIXIMAB) [Concomitant]
  3. MYCOPHENOLATE MOFETIL [Concomitant]
  4. STEROIDS NOS (NO INGREDIENTS/SUBSTANCES [Concomitant]

REACTIONS (5)
  - HAEMODIALYSIS [None]
  - HYPERPHOSPHATAEMIA [None]
  - NEPHROCALCINOSIS [None]
  - NEPHROPATHY [None]
  - RENAL TUBULAR NECROSIS [None]
